FAERS Safety Report 11266818 (Version 1)
Quarter: 2015Q3

REPORT INFORMATION
  Report Type: Spontaneous
  Country: US (occurrence: US)
  Receive Date: 20150713
  Receipt Date: 20150713
  Transmission Date: 20151125
  Serious: Yes (Other)
  Sender: FDA-Public Use
  Company Number: US-ELI_LILLY_AND_COMPANY-US201507001600

PATIENT
  Sex: Female

DRUGS (2)
  1. CYMBALTA [Suspect]
     Active Substance: DULOXETINE HYDROCHLORIDE
     Indication: DEPRESSION
  2. CYMBALTA [Suspect]
     Active Substance: DULOXETINE HYDROCHLORIDE
     Indication: PAIN
     Route: 065

REACTIONS (25)
  - Confusional state [Unknown]
  - Crying [Unknown]
  - Abdominal pain upper [Unknown]
  - Back pain [Unknown]
  - Fatigue [Unknown]
  - Influenza like illness [Unknown]
  - Hallucination, auditory [Unknown]
  - Anxiety [Unknown]
  - Homicidal ideation [Unknown]
  - Suicidal ideation [Unknown]
  - Aggression [Unknown]
  - Dizziness [Unknown]
  - Memory impairment [Unknown]
  - Disturbance in attention [Unknown]
  - Drug withdrawal syndrome [Unknown]
  - Paraesthesia [Unknown]
  - Panic attack [Unknown]
  - Depression [Unknown]
  - Nausea [Unknown]
  - Migraine [Unknown]
  - Irritability [Unknown]
  - Headache [Unknown]
  - Agitation [Unknown]
  - Vertigo [Unknown]
  - Akathisia [Unknown]
